FAERS Safety Report 20160185 (Version 1)
Quarter: 2021Q4

REPORT INFORMATION
  Report Type: Spontaneous
  Country: PT (occurrence: PT)
  Receive Date: 20211208
  Receipt Date: 20211208
  Transmission Date: 20220303
  Serious: Yes (Hospitalization, Other)
  Sender: FDA-Public Use
  Company Number: PT-Accord-246482

PATIENT
  Age: 61 Year
  Sex: Female

DRUGS (3)
  1. CAPECITABINE [Suspect]
     Active Substance: CAPECITABINE
     Indication: Pancreatic neuroendocrine tumour
  2. TEMOZOLOMIDE [Suspect]
     Active Substance: TEMOZOLOMIDE
     Indication: Pancreatic neuroendocrine tumour
  3. TINZAPARIN SODIUM [Suspect]
     Active Substance: TINZAPARIN SODIUM
     Indication: Pancreatic neuroendocrine tumour

REACTIONS (2)
  - Tumour lysis syndrome [Unknown]
  - Off label use [Unknown]
